FAERS Safety Report 5764312-1 (Version None)
Quarter: 2008Q2

REPORT INFORMATION
  Report Type: 
  Country: None (occurrence: None)
  Receive Date: 20080604
  Receipt Date: 20080527
  Transmission Date: 20081010
  Serious: Yes (Other)
  Sender: FDA-Public Use
  Company Number: 2008SP010064

PATIENT
  Age: 58 Year
  Sex: Female

DRUGS (2)
  1. PEG-INTRON [Suspect]
     Indication: HEPATITIS C
     Dates: start: 20080331
  2. REBETOL [Suspect]
     Indication: HEPATITIS C
     Dosage: PO
     Route: 048
     Dates: start: 20080331

REACTIONS (9)
  - ANAEMIA [None]
  - BLOOD IRON DECREASED [None]
  - DIZZINESS [None]
  - FALL [None]
  - GAIT DISTURBANCE [None]
  - JAUNDICE [None]
  - MALAISE [None]
  - NAUSEA [None]
  - RED BLOOD CELL COUNT DECREASED [None]
